FAERS Safety Report 5938330-4 (Version None)
Quarter: 2008Q4

REPORT INFORMATION
  Report Type: 
  Country: None (occurrence: None)
  Receive Date: 20081103
  Receipt Date: 20081027
  Transmission Date: 20090506
  Serious: Yes (Other)
  Sender: FDA-Public Use
  Company Number: DE-JNJFOC-20081006396

PATIENT
  Age: 74 Year
  Sex: Male

DRUGS (7)
  1. TAVANIC [Suspect]
     Indication: OTITIS MEDIA
     Route: 048
  2. DUSODRIL [Concomitant]
     Route: 048
  3. GODAMED [Concomitant]
     Route: 048
  4. FLUVASTATIN [Concomitant]
     Route: 065
  5. FLUVASTATIN [Concomitant]
     Route: 065
  6. BERLTHYROX [Concomitant]
     Route: 065
  7. TERAZOSIN HCL [Concomitant]
     Dosage: DOSE:1/2
     Route: 065

REACTIONS (5)
  - ANGINA PECTORIS [None]
  - CARDIOVASCULAR DISORDER [None]
  - FEELING ABNORMAL [None]
  - HEART RATE INCREASED [None]
  - NAUSEA [None]
